FAERS Safety Report 18321468 (Version 6)
Quarter: 2020Q4

REPORT INFORMATION
  Report Type: Report from Study
  Country: KR (occurrence: KR)
  Receive Date: 20200929
  Receipt Date: 20201211
  Transmission Date: 20210113
  Serious: Yes (Hospitalization, Other)
  Sender: FDA-Public Use
  Company Number: KR-CELLTRION INC.-2020KR028257

PATIENT

DRUGS (48)
  1. ABEMACICLIB [Suspect]
     Active Substance: ABEMACICLIB
     Indication: NEOPLASM MALIGNANT
     Dosage: 100 MG
     Route: 048
     Dates: start: 20200901
  2. NEXIUM [Concomitant]
     Active Substance: ESOMEPRAZOLE MAGNESIUM
     Dosage: UNK
     Route: 048
     Dates: start: 20200923
  3. DEXAMETHASONE. [Concomitant]
     Active Substance: DEXAMETHASONE
     Indication: REDUCTION OF INCREASED INTRACRANIAL PRESSURE
  4. LOPERAMIDE [Concomitant]
     Active Substance: LOPERAMIDE
     Dosage: UNK
     Dates: start: 20200901, end: 20200928
  5. FENTANYL. [Concomitant]
     Active Substance: FENTANYL
     Dosage: UNK
     Dates: start: 20200901, end: 20200915
  6. TABAXIN [Concomitant]
     Active Substance: PIPERACILLIN SODIUM\TAZOBACTAM SODIUM
     Indication: SYSTEMIC INFECTION
  7. POTASSIUM [Concomitant]
     Active Substance: POTASSIUM
     Dosage: K 20/MEQ/NS
     Dates: start: 20200928, end: 20200928
  8. FUROSEMIDE. [Concomitant]
     Active Substance: FUROSEMIDE
     Dosage: UNK
     Dates: start: 20200928, end: 20200928
  9. ABEMACICLIB [Suspect]
     Active Substance: ABEMACICLIB
     Dosage: UNK
     Dates: start: 20200901, end: 20200927
  10. FULVESTRANT. [Suspect]
     Active Substance: FULVESTRANT
     Indication: NEOPLASM MALIGNANT
     Dosage: UNK
     Dates: start: 20200901, end: 20200915
  11. ESOMEPRAZOLE MAGNESIUM DIHYDRATE [Concomitant]
     Active Substance: ESOMEPRAZOLE MAGNESIUM
     Indication: DYSPEPSIA
     Dosage: 1 TAB QD
     Route: 048
     Dates: start: 20200922, end: 20200928
  12. METHOTREXATE. [Concomitant]
     Active Substance: METHOTREXATE
     Indication: CHEMOTHERAPY
     Dosage: 50MG IN THE SPINAL CAVITY
     Route: 037
  13. METOCLOPRAMIDE. [Concomitant]
     Active Substance: METOCLOPRAMIDE
     Dosage: UNK
     Dates: start: 20200901, end: 20200928
  14. CODEINE PHOSPHATE [Concomitant]
     Active Substance: CODEINE PHOSPHATE
     Dosage: UNK
     Dates: start: 20200901, end: 20200915
  15. HUMULIN R [Concomitant]
     Active Substance: INSULIN HUMAN
     Dosage: UNK
     Dates: start: 20200923, end: 20200923
  16. HERZUMA [Suspect]
     Active Substance: TRASTUZUMAB-PKRB
     Indication: HER2 POSITIVE BREAST CANCER
     Dosage: 400.8MG * N/S 250 MIX, 3-WEEKLY
     Route: 042
     Dates: start: 20200901, end: 20200923
  17. CODEINE PHOSPHATE HYDRATE [Concomitant]
     Active Substance: CODEINE PHOSPHATE
     Indication: HEADACHE
     Dosage: 1 TAB, BID
     Route: 048
     Dates: start: 20200922, end: 20200928
  18. LASIX [Concomitant]
     Active Substance: FUROSEMIDE
     Indication: REDUCTION OF INCREASED INTRACRANIAL PRESSURE
     Dosage: UNK
     Dates: start: 20200928
  19. MANITOL [Concomitant]
     Active Substance: MANNITOL
     Indication: REDUCTION OF INCREASED INTRACRANIAL PRESSURE
     Dosage: UNK
     Dates: start: 20200928
  20. JARDIANCE [Concomitant]
     Active Substance: EMPAGLIFLOZIN
     Dosage: UNK
     Dates: start: 20200423, end: 20200824
  21. NYSTATIN. [Concomitant]
     Active Substance: NYSTATIN
     Dosage: UNK
     Dates: start: 20200915, end: 20200920
  22. LACTULOSE CONCENTRATE [Concomitant]
     Dosage: UNK
     Dates: start: 20200926, end: 20200928
  23. MAGNESIUM HYDROXIDE. [Concomitant]
     Active Substance: MAGNESIUM HYDROXIDE
     Dosage: UNK
     Dates: start: 20200928, end: 20200928
  24. ABEMACICLIB [Suspect]
     Active Substance: ABEMACICLIB
     Dosage: UNK
     Dates: start: 20200925
  25. DEXAMETHASONE. [Concomitant]
     Active Substance: DEXAMETHASONE
     Indication: REDUCTION OF INCREASED INTRACRANIAL PRESSURE
     Dosage: UNK, INJECTED TO IV TO REDUCE IICP AFTER 27 SEP (YEAR UNSPECIFIED)
     Dates: start: 20200928
  26. OXYCODON [Concomitant]
     Active Substance: OXYCODONE
     Dosage: UNK
     Dates: start: 20200925, end: 20200928
  27. COTRIM [Concomitant]
     Active Substance: SULFAMETHOXAZOLE\TRIMETHOPRIM
     Indication: ANTIBIOTIC THERAPY
     Dosage: UNK
  28. COTRIM [Concomitant]
     Active Substance: SULFAMETHOXAZOLE\TRIMETHOPRIM
     Indication: SYSTEMIC INFECTION
     Dosage: UNK
     Dates: start: 20200928, end: 20201006
  29. FLUCONAZOLE. [Concomitant]
     Active Substance: FLUCONAZOLE
     Dosage: UNK
     Dates: start: 20200929, end: 20201012
  30. TARGIN CR [Concomitant]
     Active Substance: NALOXONE HYDROCHLORIDE\OXYCODONE HYDROCHLORIDE
     Dosage: UNK
     Dates: start: 20200813, end: 20200901
  31. DEXAMETHASONE. [Concomitant]
     Active Substance: DEXAMETHASONE
     Dosage: UNK
     Dates: start: 20200928, end: 20201024
  32. TARGIN CR [Concomitant]
     Active Substance: NALOXONE HYDROCHLORIDE\OXYCODONE HYDROCHLORIDE
     Dosage: UNK
     Dates: start: 20200923, end: 20200928
  33. DEXAMETHASONE. [Concomitant]
     Active Substance: DEXAMETHASONE
     Dosage: UNK
     Dates: start: 20200901, end: 20200928
  34. TABAXIN [Concomitant]
     Active Substance: PIPERACILLIN SODIUM\TAZOBACTAM SODIUM
     Indication: ANTIBIOTIC THERAPY
     Dosage: UNK
     Dates: start: 20200928, end: 20201008
  35. NAPROXEN. [Concomitant]
     Active Substance: NAPROXEN
     Dosage: UNK
     Dates: start: 20200927, end: 20200927
  36. HERZUMA [Suspect]
     Active Substance: TRASTUZUMAB-PKRB
     Dosage: 300.6MG * N/S 250 MIX, 3-WEEKLY
     Route: 042
     Dates: start: 20200901, end: 20200923
  37. ABEMACICLIB [Suspect]
     Active Substance: ABEMACICLIB
     Dosage: UNK
     Dates: start: 20200924
  38. LOPERAMIDE HYDROCHLORIDE. [Concomitant]
     Active Substance: LOPERAMIDE HYDROCHLORIDE
     Indication: DIARRHOEA
     Dosage: 2 TAB QID
     Route: 048
     Dates: start: 20200922, end: 20200928
  39. NEXIUM [Concomitant]
     Active Substance: ESOMEPRAZOLE MAGNESIUM
     Indication: PROPHYLAXIS
     Route: 042
  40. METHOTREXATE. [Concomitant]
     Active Substance: METHOTREXATE
     Dosage: UNK
     Dates: start: 20200928
  41. DEXAMETHASONE. [Concomitant]
     Active Substance: DEXAMETHASONE
     Indication: HEADACHE
     Dosage: 2 TAB QD
     Route: 048
     Dates: start: 20200922, end: 20200928
  42. DIABEX [Concomitant]
     Active Substance: METFORMIN HYDROCHLORIDE
     Dosage: UNK
     Dates: start: 20200604, end: 20200827
  43. DIABEX [Concomitant]
     Active Substance: METFORMIN HYDROCHLORIDE
     Dosage: UNK
     Dates: start: 20200930, end: 20201012
  44. METOCLOPRAMIDE. [Concomitant]
     Active Substance: METOCLOPRAMIDE
     Dosage: UNK
     Dates: start: 20200929, end: 20201013
  45. TIROPRAMIDE [Concomitant]
     Active Substance: TIROPRAMIDE
     Dosage: UNK
     Dates: start: 20200924, end: 20200928
  46. MONOBASIC POTASSIUM PHOSPHATE [Concomitant]
     Dosage: UNK
     Dates: start: 20200928, end: 20200928
  47. ESOMEPRAZOLE. [Concomitant]
     Active Substance: ESOMEPRAZOLE MAGNESIUM
     Dosage: UNK
     Dates: start: 20200928, end: 20201024
  48. ACETAMINOPHEN. [Concomitant]
     Active Substance: ACETAMINOPHEN
     Dosage: UNK
     Dates: start: 20200923, end: 20200923

REACTIONS (15)
  - Irritability [Unknown]
  - Pleural effusion [Unknown]
  - Blood potassium abnormal [Unknown]
  - Blood phosphorus abnormal [Unknown]
  - Fall [Unknown]
  - Disorientation [Unknown]
  - Hypokalaemia [Unknown]
  - Blood glucose abnormal [Unknown]
  - Vomiting [Unknown]
  - Systemic infection [Unknown]
  - Hyperglycaemia [Unknown]
  - Contusion [Unknown]
  - Overdose [Unknown]
  - Asthenia [Not Recovered/Not Resolved]
  - Somnolence [Unknown]

NARRATIVE: CASE EVENT DATE: 20200918
